FAERS Safety Report 20609090 (Version 2)
Quarter: 2022Q1

REPORT INFORMATION
  Report Type: Spontaneous
  Country: SG (occurrence: SG)
  Receive Date: 20220317
  Receipt Date: 20220329
  Transmission Date: 20220423
  Serious: Yes (Other)
  Sender: FDA-Public Use
  Company Number: SG-009507513-2203SGP005277

PATIENT
  Age: 71 Year
  Sex: Male

DRUGS (5)
  1. DORZOLAMIDE HYDROCHLORIDE [Suspect]
     Active Substance: DORZOLAMIDE HYDROCHLORIDE
     Indication: Open angle glaucoma
     Dosage: UNKNOWN
     Route: 047
  2. TIMOLOL MALEATE [Suspect]
     Active Substance: TIMOLOL MALEATE
     Indication: Open angle glaucoma
     Route: 047
  3. LEVOFLOXACIN [Suspect]
     Active Substance: LEVOFLOXACIN
     Route: 047
  4. PREDNISOLONE [Concomitant]
     Active Substance: PREDNISOLONE
     Dosage: 15 MILLIGRAM, DAILY
     Route: 048
  5. TRAVOPROST [Concomitant]
     Active Substance: TRAVOPROST
     Dosage: UNKNOWN
     Route: 047

REACTIONS (4)
  - Intraocular pressure increased [Unknown]
  - Drug ineffective [Unknown]
  - Endophthalmitis [Recovered/Resolved with Sequelae]
  - Retinal detachment [Unknown]
